FAERS Safety Report 17683238 (Version 2)
Quarter: 2020Q2

REPORT INFORMATION
  Report Type: Spontaneous
  Country: FR (occurrence: FR)
  Receive Date: 20200420
  Receipt Date: 20200422
  Transmission Date: 20200714
  Serious: Yes (Disabling, Other)
  Sender: FDA-Public Use
  Company Number: FR-LEO PHARMA-329216

PATIENT
  Age: 60 Year
  Sex: Male

DRUGS (1)
  1. PROTOPIC [Suspect]
     Active Substance: TACROLIMUS
     Indication: VITILIGO
     Dosage: EVERY 12 HOURS
     Route: 061
     Dates: start: 2013, end: 201609

REACTIONS (2)
  - Application site discolouration [Recovered/Resolved]
  - Product use in unapproved indication [Unknown]
